FAERS Safety Report 10777660 (Version 3)
Quarter: 2015Q1

REPORT INFORMATION
  Report Type: Spontaneous
  Country: US (occurrence: US)
  Receive Date: 20150209
  Receipt Date: 20150326
  Transmission Date: 20150721
  Serious: No
  Sender: FDA-Public Use
  Company Number: US-PFIZER INC-2015051271

PATIENT
  Age: 83 Year
  Sex: Female

DRUGS (1)
  1. REVATIO [Suspect]
     Active Substance: SILDENAFIL CITRATE
     Indication: ARTERIAL DISORDER
     Dosage: 20 MG, 3X/DAY
     Dates: start: 2012

REACTIONS (1)
  - Nasopharyngitis [Recovered/Resolved]
